FAERS Safety Report 10086662 (Version 1)
Quarter: 2014Q2

REPORT INFORMATION
  Report Type: Spontaneous
  Country: US (occurrence: None)
  Receive Date: 20140417
  Receipt Date: 20140417
  Transmission Date: 20141212
  Serious: Yes (Hospitalization)
  Sender: FDA-Public Use
  Company Number: None

PATIENT
  Age: 50 Year
  Sex: Female
  Weight: 79.38 kg

DRUGS (2)
  1. INTERLEUKIN-2 [Suspect]
     Indication: METASTATIC RENAL CELL CARCINOMA
     Dosage: 600, 000 INTERNATIONAL Q8H FOR 14 DOSES INTRAVENOUS
     Route: 042
  2. PROLEUKIN ( ALDESLEUKIN) [Concomitant]

REACTIONS (9)
  - Chills [None]
  - Pyrexia [None]
  - Nausea [None]
  - Vomiting [None]
  - Anaemia [None]
  - Tachycardia [None]
  - Tachypnoea [None]
  - Pulmonary oedema [None]
  - Hypotension [None]
